FAERS Safety Report 14683495 (Version 1)
Quarter: 2018Q1

REPORT INFORMATION
  Report Type: Report from Study
  Country: US (occurrence: US)
  Receive Date: 20180327
  Receipt Date: 20180327
  Transmission Date: 20180509
  Serious: No
  Sender: FDA-Public Use
  Company Number: US-AMGEN-USASL2018040429

PATIENT
  Sex: Female

DRUGS (1)
  1. ENBREL [Suspect]
     Active Substance: ETANERCEPT
     Indication: PRODUCT USED FOR UNKNOWN INDICATION
     Dosage: UNK
     Route: 065

REACTIONS (9)
  - Chest pain [Unknown]
  - Synovial cyst [Unknown]
  - Stress [Unknown]
  - Thyroid disorder [Unknown]
  - Dehydration [Unknown]
  - Sensory disturbance [Unknown]
  - Joint swelling [Unknown]
  - Renal disorder [Unknown]
  - Fungal infection [Unknown]
